FAERS Safety Report 8795300 (Version 2)
Quarter: 2013Q2

REPORT INFORMATION
  Report Type: Report from Study
  Country: JP (occurrence: JP)
  Receive Date: 20120917
  Receipt Date: 20130411
  Transmission Date: 20140414
  Serious: No
  Sender: FDA-Public Use
  Company Number: JP-VERTEX PHARMACEUTICAL INC.-AE-2012-011847

PATIENT
  Age: 65 Year
  Sex: Male

DRUGS (11)
  1. VX-950 (TELAPREVIR) [Suspect]
     Indication: CHRONIC HEPATITIS C
     Dosage: 2250 MG, QD
     Route: 048
     Dates: start: 20120605, end: 20120625
  2. VX-950 (TELAPREVIR) [Suspect]
     Dosage: 1500 MG, QD
     Route: 048
     Dates: start: 20120626, end: 20120827
  3. REBETOL [Suspect]
     Indication: CHRONIC HEPATITIS C
     Dosage: 600 MG, QD
     Route: 048
     Dates: start: 20120605, end: 20120625
  4. REBETOL [Suspect]
     Dosage: 200 MG, QD
     Route: 048
     Dates: start: 20120626, end: 20120710
  5. REBETOL [Suspect]
     Dosage: 200 MG, QD
     Route: 048
     Dates: start: 20120724, end: 20120813
  6. REBETOL [Suspect]
     Dosage: 400 MG, QD
     Route: 048
     Dates: start: 20120814
  7. PEGINTERFERON ALFA-2B [Concomitant]
     Dosage: 1.5 ?G/KG, WEEKLY
     Route: 058
     Dates: start: 20120605
  8. LOXONIN [Concomitant]
     Dosage: 120 MG, QD
     Route: 048
     Dates: start: 20120605
  9. GASTER [Concomitant]
     Dosage: 40 MG, QD
     Route: 048
     Dates: start: 20120605
  10. GASTER [Concomitant]
     Dosage: 40 MG, QD
     Route: 048
  11. ROHYPNOL [Concomitant]
     Dosage: 1 MG, QD
     Route: 048
     Dates: start: 20120626

REACTIONS (1)
  - Renal impairment [Recovered/Resolved]
